FAERS Safety Report 9913157 (Version 1)
Quarter: 2014Q1

REPORT INFORMATION
  Report Type: Spontaneous
  Country: US (occurrence: None)
  Receive Date: 20140218
  Receipt Date: 20140218
  Transmission Date: 20141002
  Serious: Yes (Other)
  Sender: FDA-Public Use
  Company Number: None

PATIENT
  Age: 55 Year
  Sex: Female

DRUGS (5)
  1. ABILIFY [Suspect]
     Indication: DEPRESSION
     Route: 048
     Dates: start: 20140208, end: 20140208
  2. ABILIFY [Suspect]
     Indication: ANXIETY
     Route: 048
     Dates: start: 20140208, end: 20140208
  3. TRAZADONE [Concomitant]
  4. XANAX [Concomitant]
  5. DEXILANT [Concomitant]

REACTIONS (6)
  - Headache [None]
  - Somnolence [None]
  - Hypersomnia [None]
  - Dizziness [None]
  - Feeling abnormal [None]
  - Feeling abnormal [None]
